FAERS Safety Report 13048239 (Version 1)
Quarter: 2016Q4

REPORT INFORMATION
  Report Type: Spontaneous
  Country: US (occurrence: US)
  Receive Date: 20161220
  Receipt Date: 20161220
  Transmission Date: 20170207
  Serious: Yes (Hospitalization)
  Sender: FDA-Public Use
  Company Number: US-RELYPSA-RLY2016004344

PATIENT
  Age: 29 Year
  Sex: Male

DRUGS (13)
  1. VELTASSA [Suspect]
     Active Substance: PATIROMER
     Indication: HYPERKALAEMIA
     Dosage: 8.4 G, QD
     Route: 048
     Dates: start: 20161115, end: 201612
  2. NOVOLOG [Concomitant]
     Active Substance: INSULIN ASPART
  3. LEVEMIR [Concomitant]
     Active Substance: INSULIN DETEMIR
  4. CHOLESTYRAMINE. [Concomitant]
     Active Substance: CHOLESTYRAMINE
  5. LOSARTAN POTASSIUM. [Concomitant]
     Active Substance: LOSARTAN POTASSIUM
  6. OMEPRAZOLE. [Concomitant]
     Active Substance: OMEPRAZOLE
  7. VENOFER [Concomitant]
     Active Substance: IRON SUCROSE
  8. PHOSLO [Concomitant]
     Active Substance: CALCIUM ACETATE
  9. MULTIVITAMIN [Concomitant]
     Active Substance: VITAMINS
  10. CLONIDINE HCL [Concomitant]
     Active Substance: CLONIDINE HYDROCHLORIDE
  11. AMLODIPINE BESYLATE. [Concomitant]
     Active Substance: AMLODIPINE BESYLATE
  12. ZEMPLAR [Concomitant]
     Active Substance: PARICALCITOL
  13. AUGMENTIN [Concomitant]
     Active Substance: AMOXICILLIN\CLAVULANATE POTASSIUM

REACTIONS (1)
  - Renal transplant [Unknown]

NARRATIVE: CASE EVENT DATE: 20161202
